FAERS Safety Report 4404175-X (Version None)
Quarter: 2004Q3

REPORT INFORMATION
  Report Type: 
  Country: None (occurrence: None)
  Receive Date: 20040719
  Receipt Date: 20040713
  Transmission Date: 20050211
  Serious: Yes (Death, Other)
  Sender: FDA-Public Use
  Company Number: 200410540BCA

PATIENT
  Age: 78 Year
  Sex: Male

DRUGS (6)
  1. CIPROFLOXACIN [Suspect]
     Dosage: 500 MG, BID, ORAL
     Route: 048
  2. COUMADIN [Suspect]
     Dosage: 5 MG, QD, ORAL
     Route: 048
  3. COLACE [Concomitant]
  4. DULCOLAX [Concomitant]
  5. PROPULSID [Concomitant]
  6. SINEMET [Concomitant]

REACTIONS (1)
  - PROTHROMBIN TIME PROLONGED [None]
